FAERS Safety Report 7535880-4 (Version None)
Quarter: 2011Q2

REPORT INFORMATION
  Report Type: 
  Country: None (occurrence: None)
  Receive Date: 20110607
  Receipt Date: 20110607
  Transmission Date: 20111010
  Serious: Yes (Other)
  Sender: FDA-Public Use
  Company Number: None

PATIENT
  Age: 58 Year
  Sex: Male
  Weight: 81.6475 kg

DRUGS (2)
  1. FENOFIBRATE [Suspect]
     Indication: HYPERTRIGLYCERIDAEMIA
     Dosage: 160MG QD PO
     Route: 048
     Dates: start: 20110305, end: 20110422
  2. FENOFIBRATE [Suspect]
     Indication: HYPERTRIGLYCERIDAEMIA
     Dosage: 160MG QD PO
     Route: 048
     Dates: start: 20110127, end: 20110221

REACTIONS (2)
  - RENAL IMPAIRMENT [None]
  - RENAL FAILURE CHRONIC [None]
